FAERS Safety Report 13967569 (Version 1)
Quarter: 2017Q3

REPORT INFORMATION
  Report Type: Spontaneous
  Country: GB (occurrence: GB)
  Receive Date: 20170914
  Receipt Date: 20170914
  Transmission Date: 20171128
  Serious: Yes (Death, Hospitalization)
  Sender: FDA-Public Use
  Company Number: GB-TORRENT-00015606

PATIENT
  Age: 75 Year
  Sex: Female

DRUGS (8)
  1. CLOPIDOGREL [Suspect]
     Active Substance: CLOPIDOGREL BISULFATE
  2. FUROSEMIDE. [Concomitant]
     Active Substance: FUROSEMIDE
  3. LOSARTAN. [Concomitant]
     Active Substance: LOSARTAN
  4. BISOPROLOL [Concomitant]
     Active Substance: BISOPROLOL
  5. WARFARIN [Suspect]
     Active Substance: WARFARIN
  6. PAROXETINE. [Concomitant]
     Active Substance: PAROXETINE
  7. CEFATRIZINE [Concomitant]
     Active Substance: CEFATRIZINE
  8. METFORMIN [Concomitant]
     Active Substance: METFORMIN HYDROCHLORIDE

REACTIONS (4)
  - Hydrocephalus [Not Recovered/Not Resolved]
  - Brain death [Unknown]
  - Haemorrhage intracranial [Fatal]
  - Brain herniation [Fatal]

NARRATIVE: CASE EVENT DATE: 20170730
